FAERS Safety Report 9096724 (Version 1)
Quarter: 2013Q1

REPORT INFORMATION
  Report Type: Spontaneous
  Country: CA (occurrence: CA)
  Receive Date: 20130211
  Receipt Date: 20130211
  Transmission Date: 20140127
  Serious: Yes (Other)
  Sender: FDA-Public Use
  Company Number: CA-ELI_LILLY_AND_COMPANY-CA201302000442

PATIENT
  Age: 39 Year
  Sex: Female
  Weight: 52 kg

DRUGS (12)
  1. ZYPREXA ZYDIS [Suspect]
     Dosage: 10 MG, BID
     Route: 048
  2. OLANZAPINE [Concomitant]
  3. ACETAMINOPHEN [Concomitant]
  4. BENZTROPINE MESYLATE [Concomitant]
  5. CARBAMAZEPINE [Concomitant]
  6. CLONAZEPAM [Concomitant]
  7. PAROXETINE [Concomitant]
  8. QUETIAPINE [Concomitant]
     Dosage: 100 MG, UNK
     Route: 048
  9. RISPERDAL CONSTA [Concomitant]
     Dosage: 37.5 MG, OTHER
     Route: 030
  10. RISPERDAL CONSTA [Concomitant]
     Dosage: 25 MG, UNK
     Route: 030
  11. TRIQUILAR 28 [Concomitant]
  12. ZOPICLONE [Concomitant]

REACTIONS (2)
  - Laceration [Recovered/Resolved]
  - Tongue biting [Recovered/Resolved]
